FAERS Safety Report 6354623-3 (Version None)
Quarter: 2009Q3

REPORT INFORMATION
  Report Type: 
  Country: None (occurrence: None)
  Receive Date: 20090909
  Receipt Date: 20090828
  Transmission Date: 20100115
  Serious: Yes (Hospitalization)
  Sender: FDA-Public Use
  Company Number: TUK2009A00144

PATIENT
  Age: 65 Year
  Sex: Male

DRUGS (6)
  1. ACTOS [Suspect]
     Indication: DRUG USE FOR UNKNOWN INDICATION
     Dosage: 15 MG ORAL
     Route: 048
     Dates: start: 20090603, end: 20090608
  2. AMOXICILLIN [Concomitant]
  3. FUROSEMIDE [Concomitant]
  4. LOSARTAN POTASSIUM [Concomitant]
  5. METFORMIN HCL [Concomitant]
  6. OMEPRAZOLE [Concomitant]

REACTIONS (4)
  - CARDIAC FAILURE CONGESTIVE [None]
  - PENILE OEDEMA [None]
  - RENAL FAILURE CHRONIC [None]
  - SCROTAL OEDEMA [None]
